FAERS Safety Report 17161454 (Version 1)
Quarter: 2019Q4

REPORT INFORMATION
  Report Type: Spontaneous
  Country: US (occurrence: US)
  Receive Date: 20191216
  Receipt Date: 20191216
  Transmission Date: 20200122
  Serious: No
  Sender: FDA-Public Use
  Company Number: NVSC2019US067442

PATIENT
  Sex: Female

DRUGS (1)
  1. OCTREOTIDE. [Suspect]
     Active Substance: OCTREOTIDE
     Indication: CARCINOID TUMOUR
     Dosage: 30 MG
     Route: 065
     Dates: start: 20191113

REACTIONS (6)
  - Pyrexia [Unknown]
  - Injection site pain [Unknown]
  - Anxiety [Unknown]
  - Pain in extremity [Unknown]
  - Insomnia [Unknown]
  - Chest discomfort [Unknown]
